FAERS Safety Report 10243972 (Version 1)
Quarter: 2014Q1

REPORT INFORMATION
  Report Type: Spontaneous
  Country: US (occurrence: None)
  Receive Date: 20140306
  Receipt Date: 20140306
  Transmission Date: 20141002
  Serious: Yes (Hospitalization)
  Sender: FDA-Public Use
  Company Number: 163-21880-13110923

PATIENT
  Age: 61 Year
  Sex: Female
  Weight: 81.6 kg

DRUGS (4)
  1. REVLIMID (LENALIDOMIDE) (25 MILLIGRAM, CAPSULES) [Suspect]
     Indication: PLASMA CELL MYELOMA
     Route: 048
     Dates: start: 201211
  2. ABX (AMBROXOL HYDROCHLORIDE) (UNKNOWN) [Concomitant]
  3. STEROIDS (OTHER THERAPEUTIC PRODUCTS) (UNKNOWN) [Concomitant]
  4. INHALER (OTHER THERAPEUTIC PRODUCTS) (UNKNOWN) [Concomitant]

REACTIONS (2)
  - Bronchitis [None]
  - Asthenia [None]
